FAERS Safety Report 12979845 (Version 1)
Quarter: 2016Q4

REPORT INFORMATION
  Report Type: Report from Study
  Country: BR (occurrence: BR)
  Receive Date: 20161128
  Receipt Date: 20161128
  Transmission Date: 20170207
  Serious: Yes (Other)
  Sender: FDA-Public Use
  Company Number: PHHY2016BR099989

PATIENT
  Sex: Female
  Weight: 70 kg

DRUGS (1)
  1. GILENYA [Suspect]
     Active Substance: FINGOLIMOD HYDROCHLORIDE
     Indication: MULTIPLE SCLEROSIS
     Dosage: 0.5 MG, QD
     Route: 048
     Dates: start: 201408, end: 20160505

REACTIONS (5)
  - Feeling abnormal [Unknown]
  - Herpes virus infection [Recovering/Resolving]
  - Immunodeficiency [Recovered/Resolved]
  - CD4 lymphocytes decreased [Recovered/Resolved]
  - Stress [Unknown]
